FAERS Safety Report 7231996-0 (Version None)
Quarter: 2011Q1

REPORT INFORMATION
  Report Type: 
  Country: None (occurrence: None)
  Receive Date: 20110118
  Receipt Date: 20110111
  Transmission Date: 20110831
  Serious: Yes (Disabling)
  Sender: FDA-Public Use
  Company Number: US-RB-023938-09

PATIENT
  Age: 50 Year
  Sex: Female

DRUGS (3)
  1. BUPRENORPHINE [Suspect]
     Indication: PRODUCT USED FOR UNKNOWN INDICATION
     Dosage: UNKNOWN DOSING DETAILS
     Route: 065
  2. SUBUTEX [Suspect]
     Indication: PRODUCT USED FOR UNKNOWN INDICATION
     Dosage: DOSING DETAILS UNKNOWN
     Route: 065
  3. SUBOXONE [Suspect]
     Indication: PRODUCT USED FOR UNKNOWN INDICATION
     Dosage: UNKNOWN DOSING INFORMATION
     Route: 065

REACTIONS (15)
  - PAIN [None]
  - TRICHOTILLOMANIA [None]
  - WEIGHT INCREASED [None]
  - HYPERSENSITIVITY [None]
  - ABDOMINAL PAIN UPPER [None]
  - DRUG WITHDRAWAL SYNDROME [None]
  - HYPERPHAGIA [None]
  - NERVOUSNESS [None]
  - HERPES ZOSTER [None]
  - DEAFNESS [None]
  - TOOTH FRACTURE [None]
  - MEMORY IMPAIRMENT [None]
  - DRUG DEPENDENCE [None]
  - RASH MACULAR [None]
  - VISUAL IMPAIRMENT [None]
